FAERS Safety Report 5310437-4 (Version None)
Quarter: 2007Q2

REPORT INFORMATION
  Report Type: 
  Country: None (occurrence: None)
  Receive Date: 20070427
  Receipt Date: 20070423
  Transmission Date: 20071010
  Serious: Yes (Hospitalization)
  Sender: FDA-Public Use
  Company Number: US-BOEHRINGER INGELHEIM PHARMACEUTICALS, INC.-2007-DE-02319GD

PATIENT
  Age: 9 Year
  Sex: Male
  Weight: 77 kg

DRUGS (3)
  1. CLONIDINE [Suspect]
     Indication: ATTENTION DEFICIT/HYPERACTIVITY DISORDER
     Route: 048
  2. ADDERALL XR 10 [Suspect]
     Indication: ATTENTION DEFICIT/HYPERACTIVITY DISORDER
     Route: 048
  3. STRATTERA [Suspect]
     Indication: ATTENTION DEFICIT/HYPERACTIVITY DISORDER
     Route: 048

REACTIONS (7)
  - ANOREXIA [None]
  - DRUG INTERACTION [None]
  - DYSKINESIA [None]
  - HALLUCINATION [None]
  - HYPERTENSION [None]
  - INSOMNIA [None]
  - TACHYCARDIA [None]
